FAERS Safety Report 22681803 (Version 6)
Quarter: 2023Q4

REPORT INFORMATION
  Report Type: Report from Study
  Country: US (occurrence: US)
  Receive Date: 20230707
  Receipt Date: 20231115
  Transmission Date: 20240110
  Serious: Yes (Death, Hospitalization, Other)
  Sender: FDA-Public Use
  Company Number: US-TAKEDA-2023TUS044456

PATIENT
  Age: 61 Year
  Sex: Male

DRUGS (1)
  1. VEDOLIZUMAB [Suspect]
     Active Substance: VEDOLIZUMAB
     Indication: Colitis ulcerative
     Dosage: 300 MILLIGRAM
     Route: 042
     Dates: start: 20230420, end: 20231019

REACTIONS (14)
  - Thrombosis [Fatal]
  - Metastases to liver [Fatal]
  - Haemorrhage [Unknown]
  - Colon cancer metastatic [Not Recovered/Not Resolved]
  - Sunburn [Recovering/Resolving]
  - Weight decreased [Not Recovered/Not Resolved]
  - Renal function test abnormal [Unknown]
  - Procedural pain [Unknown]
  - Ageusia [Not Recovered/Not Resolved]
  - Rhinorrhoea [Not Recovered/Not Resolved]
  - Decreased appetite [Not Recovered/Not Resolved]
  - Muscle spasms [Recovered/Resolved]
  - Back pain [Recovered/Resolved]
  - Fatigue [Not Recovered/Not Resolved]

NARRATIVE: CASE EVENT DATE: 20230420
